FAERS Safety Report 16737416 (Version 1)
Quarter: 2019Q3

REPORT INFORMATION
  Report Type: Spontaneous
  Country: CA (occurrence: CA)
  Receive Date: 20190823
  Receipt Date: 20190823
  Transmission Date: 20191005
  Serious: Yes (Other)
  Sender: FDA-Public Use
  Company Number: CA-MYLANLABS-2019M1078682

PATIENT
  Sex: Female
  Weight: 51 kg

DRUGS (13)
  1. BUSULFAN. [Concomitant]
     Active Substance: BUSULFAN
  2. GEMCITABINE. [Concomitant]
     Active Substance: GEMCITABINE
  3. VINCRISTINE SULFATE. [Concomitant]
     Active Substance: VINCRISTINE SULFATE
     Dosage: 1.0
  4. VINORELBINE TARTRATE. [Concomitant]
     Active Substance: VINORELBINE TARTRATE
  5. MELPHALAN. [Concomitant]
     Active Substance: MELPHALAN
  6. BLEOMYCIN SULFATE [Concomitant]
     Active Substance: BLEOMYCIN SULFATE
  7. METHYLPREDNISOLONE. [Concomitant]
     Active Substance: METHYLPREDNISOLONE
  8. DOXORUBICIN [Suspect]
     Active Substance: DOXORUBICIN
     Indication: HODGKIN^S DISEASE
     Dosage: 25 MILLIGRAM/SQ. METER
     Route: 042
  9. CYCLOPHOSPHAMIDE. [Concomitant]
     Active Substance: CYCLOPHOSPHAMIDE
  10. DEXAMETHASONE. [Concomitant]
     Active Substance: DEXAMETHASONE
  11. ETOPOSIDE. [Concomitant]
     Active Substance: ETOPOSIDE
  12. BRENTUXIMAB VEDOTIN [Concomitant]
     Active Substance: BRENTUXIMAB VEDOTIN
  13. PREDNISONE. [Concomitant]
     Active Substance: PREDNISONE

REACTIONS (1)
  - Cardiotoxicity [Unknown]
